FAERS Safety Report 4592528-9 (Version None)
Quarter: 2005Q1

REPORT INFORMATION
  Report Type: 
  Country: None (occurrence: None)
  Receive Date: 20050222
  Receipt Date: 20050207
  Transmission Date: 20050727
  Serious: Yes (Hospitalization, Other)
  Sender: FDA-Public Use
  Company Number: 2005023545

PATIENT
  Sex: Male
  Weight: 70.3075 kg

DRUGS (4)
  1. NARDIL [Suspect]
     Indication: BIPOLAR I DISORDER
     Dosage: 45 MG (15 MG, 1 IN 1 D), ORAL
     Route: 048
  2. QUETIAPIN FUMARATE          (QUETIAPINE FUMARATE) [Suspect]
     Indication: BIPOLAR I DISORDER
     Dosage: 50 MG (50 MG, 1 IN 1 D), ORAL
     Route: 048
  3. ARIPRAZOLE (ARIPIPRAZOLE) [Suspect]
     Indication: BIPOLAR I DISORDER
     Dosage: 10 MG (10 MG, 1 IN 1 D), ORAL
     Route: 048
     Dates: start: 20041220, end: 20050101
  4. LITHIUM        (LITHIUM) [Concomitant]

REACTIONS (8)
  - ANORGASMIA [None]
  - ANXIETY [None]
  - DEPRESSION SUICIDAL [None]
  - DRY MOUTH [None]
  - MUSCLE RIGIDITY [None]
  - PHARMACEUTICAL PRODUCT COMPLAINT [None]
  - TREMOR [None]
  - VISION BLURRED [None]
